FAERS Safety Report 11618075 (Version 1)
Quarter: 2015Q4

REPORT INFORMATION
  Report Type: Spontaneous
  Country: RU (occurrence: RU)
  Receive Date: 20151010
  Receipt Date: 20151010
  Transmission Date: 20160304
  Serious: Yes (Hospitalization)
  Sender: FDA-Public Use
  Company Number: RU-SYMPLMED PHARMACEUTICALS-2015SYM00224

PATIENT
  Age: 57 Year
  Sex: Female

DRUGS (1)
  1. ACEON [Suspect]
     Active Substance: PERINDOPRIL ERBUMINE
     Indication: PRODUCT USED FOR UNKNOWN INDICATION
     Dosage: UNK
     Route: 048

REACTIONS (3)
  - Rhinorrhoea [Recovered/Resolved]
  - Cough [Recovered/Resolved]
  - Bronchospasm [Recovered/Resolved]

NARRATIVE: CASE EVENT DATE: 2015
